FAERS Safety Report 5168860-7 (Version None)
Quarter: 2006Q4

REPORT INFORMATION
  Report Type: 
  Country: None (occurrence: None)
  Receive Date: 20061206
  Receipt Date: 20061206
  Transmission Date: 20070319
  Serious: Yes (Death, Hospitalization)
  Sender: FDA-Public Use
  Company Number: None

PATIENT
  Sex: Male
  Weight: 79.3795 kg

DRUGS (1)
  1. TYSABRI [Suspect]
     Indication: MULTIPLE SCLEROSIS
     Dosage: I DONT KNOW   MONTHLY  IV DRIP
     Route: 041
     Dates: start: 20041220, end: 20050220

REACTIONS (4)
  - ADVERSE DRUG REACTION [None]
  - CONVULSION [None]
  - INFECTION [None]
  - URTICARIA [None]
